FAERS Safety Report 9411748 (Version 1)
Quarter: 2013Q2

REPORT INFORMATION
  Report Type: Spontaneous
  Country: US (occurrence: None)
  Receive Date: 20130507
  Receipt Date: 20130507
  Transmission Date: 20140414
  Serious: Yes (Other)
  Sender: FDA-Public Use
  Company Number: AUR-APL-2013-03388

PATIENT
  Age: 84 Year
  Sex: Male

DRUGS (9)
  1. RISPERIDONE (RISPERIDONE) [Suspect]
     Indication: DEPRESSION
     Dosage: (1 MG,2 IN 1 D)
  2. SERTRALINE (SERTRALINE) [Suspect]
     Indication: DEPRESSION
     Dates: start: 200809
  3. LAMOTRIGINE (LAMOTRIGINE) [Concomitant]
  4. HYDROCHLOROTHIAZIDE (HYDROCHLOROTHIAZIDE) [Concomitant]
  5. LISINOPRIL (LISINOPRIL) [Concomitant]
  6. ATORVASTATIN (ATORVASTATIN) [Concomitant]
  7. IPRATROPIUM BROMIDE (IPRATROPIUM BROMIDE) [Concomitant]
  8. FLUTICASONE (FLUTICASONE) [Concomitant]
  9. SINEMET [Suspect]
     Indication: PRODUCT USED FOR UNKNOWN INDICATION

REACTIONS (14)
  - Fall [None]
  - Rib fracture [None]
  - Somnolence [None]
  - Fatigue [None]
  - Parkinsonism [None]
  - Bradykinesia [None]
  - Muscle rigidity [None]
  - Gait disturbance [None]
  - Balance disorder [None]
  - Movement disorder [None]
  - Posture abnormal [None]
  - Drooling [None]
  - Dysphonia [None]
  - Kyphosis [None]
